FAERS Safety Report 4459822-3 (Version None)
Quarter: 2004Q3

REPORT INFORMATION
  Report Type: 
  Country: None (occurrence: None)
  Receive Date: 20040928
  Receipt Date: 20040407
  Transmission Date: 20050211
  Serious: No
  Sender: FDA-Public Use
  Company Number: US-BRISTOL-MYERS SQUIBB COMPANY-12555256

PATIENT
  Age: 10 Year
  Sex: Female

DRUGS (1)
  1. AMOXICILLIN [Suspect]
     Indication: SINUSITIS
     Dosage: 250 MG/5 CC = 1 TSP
     Route: 048
     Dates: start: 20040101, end: 20040402

REACTIONS (2)
  - ERYTHEMA [None]
  - PRURITUS [None]
